FAERS Safety Report 9696278 (Version 1)
Quarter: 2013Q4

REPORT INFORMATION
  Report Type: Spontaneous
  Country: BR (occurrence: BR)
  Receive Date: 20131119
  Receipt Date: 20131119
  Transmission Date: 20140711
  Serious: Yes (Hospitalization)
  Sender: FDA-Public Use
  Company Number: BR-ASTRAZENECA-2013SE83746

PATIENT
  Sex: Male

DRUGS (11)
  1. ROSUVASTATIN CALCIUM [Suspect]
     Indication: BLOOD CHOLESTEROL INCREASED
     Route: 048
  2. BRILINTA [Suspect]
     Route: 048
     Dates: start: 201212, end: 201309
  3. ASA [Concomitant]
     Indication: ANTIPLATELET THERAPY
  4. PANTOPRAZOLE [Concomitant]
     Indication: GASTRIC DISORDER
  5. PROCIMAX [Concomitant]
     Indication: SEDATIVE THERAPY
  6. GALVUS MET [Concomitant]
     Indication: DIABETES MELLITUS
  7. METFORMIN HYDROCHLORIDE [Concomitant]
     Indication: DIABETES MELLITUS
  8. ANCORON [Concomitant]
     Indication: CARDIAC DISORDER
  9. ALPRAZOLAM [Concomitant]
     Indication: SEDATIVE THERAPY
  10. FOLIC ACID [Concomitant]
     Indication: ANAEMIA
  11. COMBIRON [Concomitant]
     Indication: ANAEMIA

REACTIONS (1)
  - Haemorrhage [Recovered/Resolved]
